FAERS Safety Report 5161764-5 (Version None)
Quarter: 2006Q4

REPORT INFORMATION
  Report Type: 
  Country: None (occurrence: None)
  Receive Date: 20061121
  Receipt Date: 20061108
  Transmission Date: 20070319
  Serious: Yes (Hospitalization)
  Sender: FDA-Public Use
  Company Number: 2006105657

PATIENT
  Age: 71 Year
  Sex: Male

DRUGS (5)
  1. SU-011,248 (SUNITINIB MALATE) [Suspect]
     Indication: GASTROINTESTINAL STROMAL TUMOUR
     Dosage: SEE IMAGE, ORAL
     Route: 048
     Dates: start: 20060221, end: 20060826
  2. SU-011,248 (SUNITINIB MALATE) [Suspect]
     Indication: GASTROINTESTINAL STROMAL TUMOUR
     Dosage: SEE IMAGE, ORAL
     Route: 048
     Dates: start: 20061010
  3. FENTANYL [Suspect]
     Dosage: TRANSDERMAL
     Route: 062
     Dates: start: 20060825, end: 20060828
  4. MEGESTROL ACETATE [Concomitant]
  5. DOMPERIDONE (DOMPERIDONE) [Concomitant]

REACTIONS (8)
  - ABDOMINAL PAIN UPPER [None]
  - ALANINE AMINOTRANSFERASE INCREASED [None]
  - ASPARTATE AMINOTRANSFERASE INCREASED [None]
  - BLOOD ALBUMIN DECREASED [None]
  - BLOOD CREATININE INCREASED [None]
  - DRUG TOXICITY [None]
  - MENTAL STATUS CHANGES [None]
  - PROTEIN TOTAL DECREASED [None]
